FAERS Safety Report 7006644-5 (Version None)
Quarter: 2010Q3

REPORT INFORMATION
  Report Type: 
  Country: None (occurrence: None)
  Receive Date: 20100921
  Receipt Date: 20100921
  Transmission Date: 20110219
  Serious: No
  Sender: FDA-Public Use
  Company Number: None

PATIENT
  Sex: Female
  Weight: 45.3597 kg

DRUGS (1)
  1. OXYCONTIN [Suspect]
     Indication: PAIN
     Dosage: 10MG BID ORAL
     Route: 048
     Dates: start: 20100912, end: 20100919

REACTIONS (4)
  - DYSPNOEA [None]
  - OVERDOSE [None]
  - PRODUCT QUALITY ISSUE [None]
  - SENSATION OF HEAVINESS [None]
